FAERS Safety Report 11387412 (Version 1)
Quarter: 2015Q3

REPORT INFORMATION
  Report Type: Spontaneous
  Country: US (occurrence: US)
  Receive Date: 20150817
  Receipt Date: 20150817
  Transmission Date: 20151125
  Serious: Yes (Other)
  Sender: FDA-Public Use
  Company Number: US-JNJFOC-20150807848

PATIENT
  Age: 74 Year
  Sex: Male
  Weight: 113.4 kg

DRUGS (2)
  1. REMICADE [Suspect]
     Active Substance: INFLIXIMAB
     Indication: CROHN^S DISEASE
     Dosage: ONCE EVERY 07 TO 08 WEEKS
     Route: 042
     Dates: start: 201101
  2. REMICADE [Suspect]
     Active Substance: INFLIXIMAB
     Indication: ANAL FISTULA
     Dosage: ONCE EVERY 07 TO 08 WEEKS
     Route: 042
     Dates: start: 201101

REACTIONS (1)
  - Ejection fraction decreased [Not Recovered/Not Resolved]

NARRATIVE: CASE EVENT DATE: 201309
